FAERS Safety Report 25401084 (Version 1)
Quarter: 2025Q2

REPORT INFORMATION
  Report Type: Spontaneous
  Country: US (occurrence: US)
  Receive Date: 20250605
  Receipt Date: 20250605
  Transmission Date: 20250716
  Serious: Yes (Other)
  Sender: COOPERSURGICAL
  Company Number: US-COOPERSURGICAL, INC.-2025CPS004569

PATIENT
  Age: 27 Year
  Sex: Female
  Weight: 61.224 kg

DRUGS (2)
  1. PARAGARD T 380A [Suspect]
     Active Substance: COPPER
     Route: 015
     Dates: start: 2009, end: 20200831
  2. ARMOUR THYROID [Concomitant]
     Active Substance: THYROID, PORCINE
     Dates: start: 201603

REACTIONS (14)
  - Abortion induced [Recovered/Resolved]
  - Reproductive complication associated with device [Not Recovered/Not Resolved]
  - Hysterectomy [Not Recovered/Not Resolved]
  - Device breakage [Recovered/Resolved]
  - Foreign body in reproductive tract [Recovered/Resolved]
  - Complication of device removal [Recovered/Resolved]
  - Drug ineffective [Unknown]
  - Pregnancy with contraceptive device [Unknown]
  - Emotional distress [Not Recovered/Not Resolved]
  - Swelling [Not Recovered/Not Resolved]
  - Procedural pain [Recovered/Resolved]
  - Pelvic pain [Not Recovered/Not Resolved]
  - Intentional device use issue [Unknown]
  - Off label use [Unknown]

NARRATIVE: CASE EVENT DATE: 20091201
